FAERS Safety Report 25106707 (Version 1)
Quarter: 2025Q1

REPORT INFORMATION
  Report Type: Spontaneous
  Country: US (occurrence: US)
  Receive Date: 20250321
  Receipt Date: 20250321
  Transmission Date: 20250409
  Serious: Yes (Life-Threatening, Hospitalization, Other)
  Sender: ALEXION PHARMACEUTICALS
  Company Number: US-ASTRAZENECA-202503GLO015824US

PATIENT
  Age: 76 Year

DRUGS (1)
  1. DURVALUMAB [Suspect]
     Active Substance: DURVALUMAB
     Indication: Non-small cell lung cancer
     Route: 065

REACTIONS (2)
  - Myocarditis-myositis-myasthenia gravis overlap syndrome [Unknown]
  - Immune-mediated adverse reaction [Unknown]
